FAERS Safety Report 18594208 (Version 2)
Quarter: 2020Q4

REPORT INFORMATION
  Report Type: Report from Study
  Country: US (occurrence: US)
  Receive Date: 20201209
  Receipt Date: 20201215
  Transmission Date: 20210114
  Serious: No
  Sender: FDA-Public Use
  Company Number: US-PFIZER INC-2020478420

PATIENT
  Age: 57 Year
  Sex: Female

DRUGS (1)
  1. ENBREL [Suspect]
     Active Substance: ETANERCEPT
     Indication: PSORIATIC ARTHROPATHY
     Dosage: 50 MILLIGRAM, QWK
     Route: 065
     Dates: start: 202009

REACTIONS (8)
  - Product dose omission in error [Unknown]
  - Therapeutic product effect delayed [Unknown]
  - Injection site urticaria [Unknown]
  - Wrong technique in device usage process [Unknown]
  - Device issue [Unknown]
  - Injection site pain [Unknown]
  - Injury associated with device [Unknown]
  - Drug ineffective [Unknown]

NARRATIVE: CASE EVENT DATE: 2020
